FAERS Safety Report 10516264 (Version 1)
Quarter: 2014Q4

REPORT INFORMATION
  Report Type: Spontaneous
  Country: US (occurrence: US)
  Receive Date: 20141014
  Receipt Date: 20141014
  Transmission Date: 20150528
  Serious: Yes (Other)
  Sender: FDA-Public Use
  Company Number: US-SA-2014SA138588

PATIENT
  Age: 73 Year
  Sex: Female

DRUGS (1)
  1. ALLEGRA [Suspect]
     Active Substance: FEXOFENADINE HYDROCHLORIDE
     Indication: HYPERSENSITIVITY
     Route: 048

REACTIONS (4)
  - Nervousness [Recovered/Resolved]
  - Feeling jittery [Recovered/Resolved]
  - Spinal disorder [Unknown]
  - Drug administration error [Unknown]
